FAERS Safety Report 10203743 (Version 2)
Quarter: 2014Q2

REPORT INFORMATION
  Report Type: Spontaneous
  Country: FR (occurrence: FR)
  Receive Date: 20140529
  Receipt Date: 20140529
  Transmission Date: 20141212
  Serious: Yes (Hospitalization)
  Sender: FDA-Public Use
  Company Number: PHHY2014FR061540

PATIENT
  Age: 3 Month
  Sex: 0

DRUGS (3)
  1. OCTREOTIDE [Suspect]
     Dosage: 5 MG/KG PER HOUR
  2. OCTREOTIDE [Suspect]
     Dosage: 25 MG/KG PER HOUR
  3. OCTREOTIDE [Suspect]
     Dosage: 50 MG/KG PER HOUR

REACTIONS (2)
  - Chylothorax [Recovering/Resolving]
  - Drug ineffective [Unknown]
